FAERS Safety Report 5938276-1 (Version None)
Quarter: 2008Q4

REPORT INFORMATION
  Report Type: 
  Country: None (occurrence: None)
  Receive Date: 20081031
  Receipt Date: 20081024
  Transmission Date: 20090506
  Serious: Yes (Other)
  Sender: FDA-Public Use
  Company Number: US-GENENTECH-270478

PATIENT
  Sex: Male
  Weight: 84 kg

DRUGS (7)
  1. BEVACIZUMAB [Suspect]
     Indication: COLORECTAL CANCER
     Dosage: 10 MG/KG, Q2W
     Route: 042
     Dates: start: 20080207
  2. CETUXIMAB [Suspect]
     Indication: COLORECTAL CANCER METASTATIC
     Dosage: 400 MG/M2, SINGLE
     Route: 042
     Dates: start: 20080207
  3. CETUXIMAB [Suspect]
     Dosage: 250 MG/M2, 1/WEEK
     Route: 042
     Dates: start: 20080207
  4. IRINOTECAN HYDROCHLORIDE [Concomitant]
     Indication: COLORECTAL CANCER METASTATIC
     Dosage: 180 MG/M2, Q2W
     Route: 042
     Dates: start: 20080207
  5. LEUCOVORIN CALCIUM [Concomitant]
     Indication: COLORECTAL CANCER METASTATIC
     Dosage: 400 MG/M2, Q2W
     Route: 042
     Dates: start: 20080207
  6. FLUOROURACIL [Concomitant]
     Indication: COLORECTAL CANCER METASTATIC
     Dosage: 400 MG/M2, Q2W
     Route: 040
     Dates: start: 20080207
  7. FLUOROURACIL [Concomitant]
     Dosage: 2400 MG/M2, Q2W
     Route: 042
     Dates: start: 20080207

REACTIONS (1)
  - HYPOMAGNESAEMIA [None]
